FAERS Safety Report 13964287 (Version 4)
Quarter: 2018Q2

REPORT INFORMATION
  Report Type: Report from Study
  Country: US (occurrence: US)
  Receive Date: 20170913
  Receipt Date: 20180529
  Transmission Date: 20180711
  Serious: Yes (Hospitalization, Other)
  Sender: FDA-Public Use
  Company Number: US-BAYER-2017-169175

PATIENT
  Age: 52 Year
  Sex: Female

DRUGS (5)
  1. MAGNEVIST [Suspect]
     Active Substance: GADOPENTETATE DIMEGLUMINE
     Indication: NUCLEAR MAGNETIC RESONANCE IMAGING
     Dosage: 22 TIMES
     Route: 042
  2. MAGNEVIST [Suspect]
     Active Substance: GADOPENTETATE DIMEGLUMINE
     Indication: NUCLEAR MAGNETIC RESONANCE IMAGING
     Dosage: UNK
     Dates: start: 200901, end: 200901
  3. OMNISCAN [Suspect]
     Active Substance: GADODIAMIDE
     Dosage: 5 TIMES
  4. MULTIHANCE [Suspect]
     Active Substance: GADOBENATE DIMEGLUMINE
     Dosage: TWICE
  5. GADAVIST [Suspect]
     Active Substance: GADOBUTROL
     Dosage: TWICE

REACTIONS (43)
  - Myalgia [None]
  - Cough [None]
  - Abdominal pain upper [None]
  - Pain [None]
  - Vitreous floaters [None]
  - Toxicity to various agents [None]
  - Nystagmus [None]
  - Dry eye [None]
  - Arthralgia [None]
  - Muscle twitching [None]
  - Dyspepsia [None]
  - Chest pain [None]
  - Oesophageal pain [None]
  - Anxiety [None]
  - Deafness unilateral [None]
  - Back pain [None]
  - Dry mouth [None]
  - Torticollis [None]
  - Hypoaesthesia [None]
  - Body temperature fluctuation [None]
  - Haematuria [None]
  - Disturbance in attention [None]
  - Visual impairment [None]
  - Vertigo [None]
  - Gait disturbance [None]
  - Fine motor skill dysfunction [None]
  - Depression [None]
  - Migraine [None]
  - Dysgeusia [None]
  - Bone pain [None]
  - Tinnitus [None]
  - Gadolinium deposition disease [None]
  - Headache [None]
  - Loss of proprioception [None]
  - Palpitations [None]
  - Confusional state [None]
  - Contrast media deposition [None]
  - Cognitive disorder [None]
  - Fall [None]
  - Nausea [None]
  - Insomnia [None]
  - Muscle contractions involuntary [None]
  - Nontherapeutic agent urine positive [None]

NARRATIVE: CASE EVENT DATE: 2008
